FAERS Safety Report 8156496-5 (Version None)
Quarter: 2012Q1

REPORT INFORMATION
  Report Type: 
  Country: None (occurrence: None)
  Receive Date: 20120103
  Receipt Date: 20111025
  Transmission Date: 20120608
  Serious: No
  Sender: FDA-Public Use
  Company Number: AE-2011-002684

PATIENT
  Age: 45 Year
  Sex: Male
  Weight: 68.0396 kg

DRUGS (8)
  1. PEGASYS [Concomitant]
  2. INCIVEK [Suspect]
     Dosage: 2250 MG (750 MG, 1 IN 8 HR), ORAL
     Route: 048
     Dates: start: 20111019
  3. RIBAVIRIN [Concomitant]
  4. VITAMIN COMPLEX-50 (VITAMINS, OTHER COMBINATIONS) [Concomitant]
  5. LANTUS [Concomitant]
  6. HUMALOG [Concomitant]
  7. METFORMIN HCL [Concomitant]
  8. BENICAR [Concomitant]

REACTIONS (3)
  - FLATULENCE [None]
  - DIARRHOEA [None]
  - ARTHRALGIA [None]
